FAERS Safety Report 6856273-9 (Version None)
Quarter: 2010Q3

REPORT INFORMATION
  Report Type: 
  Country: None (occurrence: None)
  Receive Date: 20100719
  Receipt Date: 20100708
  Transmission Date: 20110219
  Serious: Yes (Other)
  Sender: FDA-Public Use
  Company Number: PHHY2010US32614

PATIENT
  Sex: Female

DRUGS (14)
  1. EXTAVIA [Suspect]
     Indication: MULTIPLE SCLEROSIS
     Dosage: 0.125 MG, QOD
     Route: 058
  2. EXTAVIA [Suspect]
     Dosage: 0.25 MG, QOD
     Route: 058
     Dates: start: 20100428
  3. METOPROLOL SUCCINATE [Concomitant]
     Dosage: 1 PO BID
  4. TRAZODONE HYDROCHLORIDE [Concomitant]
     Dosage: 1/2 TO 1 PO Q HS
  5. KETOROLAC TROMETHAMINE [Concomitant]
     Dosage: 10 MG TABLETS
  6. CYMBALTA [Concomitant]
     Dosage: 60 MG, UNK
  7. LAMICTAL [Concomitant]
     Dosage: 200 MG,TABLETS
  8. PREDNISONE [Concomitant]
     Dosage: 5 MGTABLETS
  9. NEURONTIN [Concomitant]
     Dosage: 300 MG, CAPSULES
  10. VITAMIN B6 [Concomitant]
     Dosage: 50 MG, TABLETS
  11. ULTRAM [Concomitant]
     Dosage: 50 MG, TABLETS
  12. VICODIN [Concomitant]
     Dosage: 500 MG, TABLETS
  13. NUVIGIL [Concomitant]
     Dosage: 150 MG, TABLETS
  14. GABAPENTIN [Concomitant]
     Dosage: 300 MG, UNK

REACTIONS (10)
  - BLOOD PRESSURE INCREASED [None]
  - DEPRESSION [None]
  - FATIGUE [None]
  - GAIT DISTURBANCE [None]
  - INFLUENZA LIKE ILLNESS [None]
  - INJECTION SITE ERYTHEMA [None]
  - INJECTION SITE PAIN [None]
  - MENTAL DISORDER [None]
  - MIGRAINE [None]
  - PAIN [None]
